FAERS Safety Report 6682674-8 (Version None)
Quarter: 2010Q2

REPORT INFORMATION
  Report Type: 
  Country: None (occurrence: None)
  Receive Date: 20100413
  Receipt Date: 20100328
  Transmission Date: 20101027
  Serious: Yes (Other)
  Sender: FDA-Public Use
  Company Number: 2010-1017

PATIENT
  Sex: Female

DRUGS (22)
  1. SOMATULINE DEPOT [Suspect]
     Indication: DRUG USE FOR UNKNOWN INDICATION
     Dosage: 60 MG
  2. FLUDROCORTISONE ACETATE [Concomitant]
  3. LEVOTHYROXINE SODIUM [Concomitant]
  4. MEDROXYPROGESTERONE [Concomitant]
  5. POTASSIUM CHLORIDE [Concomitant]
  6. VITAMIN D [Concomitant]
  7. AZITHROMYCIN [Concomitant]
  8. BYSTOLIC [Concomitant]
  9. CABERGOLINE [Concomitant]
  10. CITRICAL (CALCIUM CARBONATE) [Concomitant]
  11. CHLORHEXIDINE GLUC (CHLORHEXIDINE GLUCONATE) [Concomitant]
  12. OMEPRAZOLE [Concomitant]
  13. PREDNISONE (PREDNISOLONE) [Concomitant]
  14. ZONISAMIDE [Concomitant]
  15. FELBATOL [Concomitant]
  16. LORTAB (VICODIN) [Concomitant]
  17. MISOPROSTOL [Concomitant]
  18. DARVON [Concomitant]
  19. REGLAN [Concomitant]
  20. PHENERGAN (PROMETHAZINE) [Concomitant]
  21. REFRESH EYE DROPS (TEARS PLUS) [Concomitant]
  22. CHLORAZEPATE (CLORAZEPATE DIPOTASSIUM) [Concomitant]

REACTIONS (5)
  - BLOOD GLUCOSE NORMAL [None]
  - BODY TEMPERATURE INCREASED [None]
  - BREATH ODOUR [None]
  - DIARRHOEA [None]
  - RASH ERYTHEMATOUS [None]
